FAERS Safety Report 9205791 (Version 1)
Quarter: 2013Q2

REPORT INFORMATION
  Report Type: Spontaneous
  Country: US (occurrence: US)
  Receive Date: 20130403
  Receipt Date: 20130403
  Transmission Date: 20140414
  Serious: No
  Sender: FDA-Public Use
  Company Number: US-009507513-1303USA013916

PATIENT
  Sex: 0

DRUGS (2)
  1. AZASITE [Suspect]
     Dosage: 4 GTT, UNK
     Route: 047
     Dates: start: 20130323, end: 20130325
  2. AZASITE [Suspect]
     Dosage: 2 GTT, QD
     Route: 047
     Dates: start: 20130326

REACTIONS (3)
  - Drug dose omission [Unknown]
  - Product packaging quantity issue [Unknown]
  - No adverse event [Unknown]
